FAERS Safety Report 19429627 (Version 2)
Quarter: 2021Q3

REPORT INFORMATION
  Report Type: Spontaneous
  Country: US (occurrence: US)
  Receive Date: 20210617
  Receipt Date: 20210810
  Transmission Date: 20211014
  Serious: No
  Sender: FDA-Public Use
  Company Number: US-BAYER-2021-155969

PATIENT
  Age: 24 Year
  Sex: Male

DRUGS (1)
  1. JIVI [Suspect]
     Active Substance: DAMOCTOCOG ALFA PEGOL
     Indication: FACTOR VIII DEFICIENCY
     Dosage: 50 IU/KG, BIW (ON WEDNESDAYS AND SATURDAYS)

REACTIONS (3)
  - Joint noise [None]
  - Joint range of motion decreased [None]
  - Muscle atrophy [None]
